FAERS Safety Report 13878197 (Version 4)
Quarter: 2017Q4

REPORT INFORMATION
  Report Type: Report from Study
  Country: US (occurrence: US)
  Receive Date: 20170817
  Receipt Date: 20171127
  Transmission Date: 20180320
  Serious: No
  Sender: FDA-Public Use
  Company Number: US-SA-2017SA149992

PATIENT
  Age: 62 Year
  Sex: Female

DRUGS (3)
  1. AUBAGIO [Suspect]
     Active Substance: TERIFLUNOMIDE
     Indication: MULTIPLE SCLEROSIS
     Route: 048
     Dates: start: 2017
  2. AUBAGIO [Suspect]
     Active Substance: TERIFLUNOMIDE
     Indication: MULTIPLE SCLEROSIS
     Route: 048
     Dates: start: 20170621
  3. AUBAGIO [Suspect]
     Active Substance: TERIFLUNOMIDE
     Indication: MULTIPLE SCLEROSIS
     Route: 048
     Dates: end: 201708

REACTIONS (13)
  - Rhinorrhoea [Recovered/Resolved]
  - Respiratory disorder [Unknown]
  - Rhinorrhoea [Unknown]
  - Dry throat [Recovered/Resolved]
  - Skin exfoliation [Unknown]
  - Dyspnoea [Unknown]
  - Bronchitis [Unknown]
  - Respiratory tract congestion [Unknown]
  - Chest discomfort [Recovered/Resolved]
  - Cough [Unknown]
  - Cough [Recovered/Resolved]
  - Sneezing [Recovered/Resolved]
  - Unevaluable event [Unknown]

NARRATIVE: CASE EVENT DATE: 20170806
